FAERS Safety Report 4860945-5 (Version None)
Quarter: 2005Q4

REPORT INFORMATION
  Report Type: 
  Country: None (occurrence: None)
  Receive Date: 20051220
  Receipt Date: 20051209
  Transmission Date: 20060501
  Serious: Yes (Other)
  Sender: FDA-Public Use
  Company Number: CA-BRISTOL-MYERS SQUIBB COMPANY-13218664

PATIENT
  Age: 77 Year
  Sex: Male

DRUGS (16)
  1. GATIFLOXACIN [Suspect]
     Route: 042
  2. ACETAMINOPHEN [Concomitant]
     Route: 048
  3. ASPIRIN [Concomitant]
     Route: 048
  4. ALLOPURINOL [Concomitant]
     Route: 048
  5. BUDESONIDE [Concomitant]
     Route: 055
  6. FLUCONAZOLE [Concomitant]
     Route: 048
  7. FUROSEMIDE [Concomitant]
     Route: 041
  8. GLYBURIDE [Concomitant]
     Route: 048
  9. HEPARIN [Concomitant]
     Route: 058
  10. IPRATROPIUM BROMIDE [Concomitant]
     Route: 055
  11. MULTI-VITAMIN [Concomitant]
     Route: 042
  12. RAMIPRIL [Concomitant]
     Route: 048
  13. RISPERIDONE [Concomitant]
     Route: 048
  14. SALBUTAMOL [Concomitant]
     Route: 055
  15. SPIRONOLACTONE [Concomitant]
     Route: 048
  16. THIAMINE HCL [Concomitant]
     Route: 048

REACTIONS (1)
  - HYPOGLYCAEMIA [None]
